FAERS Safety Report 8190020-6 (Version None)
Quarter: 2012Q1

REPORT INFORMATION
  Report Type: 
  Country: None (occurrence: None)
  Receive Date: 20120305
  Receipt Date: 20120222
  Transmission Date: 20120608
  Serious: Yes (Other)
  Sender: FDA-Public Use
  Company Number: CPL-2012-0001

PATIENT
  Age: 53 Year
  Sex: Male

DRUGS (3)
  1. LIOTHYRONINE SODIUM TAB [Suspect]
     Indication: DRUG DISPENSING ERROR
     Dosage: 5 UG, TID
  2. LIOTHYRONINE SODIUM TAB [Suspect]
     Indication: DRUG ADMINISTRATION ERROR
     Dosage: 5 UG, TID
  3. AMIODARONE HCL [Concomitant]

REACTIONS (5)
  - THYROXINE INCREASED [None]
  - TRI-IODOTHYRONINE INCREASED [None]
  - ATRIAL FIBRILLATION [None]
  - DRUG DISPENSING ERROR [None]
  - WRONG DRUG ADMINISTERED [None]
